FAERS Safety Report 4686447-7 (Version None)
Quarter: 2005Q2

REPORT INFORMATION
  Report Type: 
  Country: None (occurrence: None)
  Receive Date: 20050606
  Receipt Date: 20050526
  Transmission Date: 20051028
  Serious: Yes (Hospitalization)
  Sender: FDA-Public Use
  Company Number: 700530

PATIENT
  Age: 64 Year
  Sex: Female
  Weight: 53.9 kg

DRUGS (9)
  1. EXTRANEAL [Suspect]
     Indication: PERITONEAL DIALYSIS
     Dosage: SEE IMAGE
     Dates: start: 20030705, end: 20030929
  2. EXTRANEAL [Suspect]
     Indication: PERITONEAL DIALYSIS
     Dosage: SEE IMAGE
     Dates: start: 20030930
  3. DIANEAL PD-2 W/ DEXTROSE 1.5% [Concomitant]
  4. DIANEAL PD2 2.5% [Concomitant]
  5. EPOETIN BETA [Concomitant]
  6. FERROUS FUMARATE [Concomitant]
  7. FUROSEMIDE [Concomitant]
  8. ALLOPURINOL [Concomitant]
  9. CALCIUM CARBONATE [Concomitant]

REACTIONS (1)
  - PULMONARY CONGESTION [None]
